FAERS Safety Report 19514626 (Version 1)
Quarter: 2021Q3

REPORT INFORMATION
  Report Type: Spontaneous
  Country: JP (occurrence: JP)
  Receive Date: 20210710
  Receipt Date: 20210710
  Transmission Date: 20211014
  Serious: Yes (Other)
  Sender: FDA-Public Use
  Company Number: JP-CELLTRION INC.-2021JP009266

PATIENT

DRUGS (5)
  1. CISPLATIN. [Concomitant]
     Active Substance: CISPLATIN
     Indication: OESOPHAGEAL ADENOCARCINOMA STAGE IV
     Dosage: 80 MG/M2, DAILY ON DAY 1
     Route: 042
  2. TRASTUZUMAB (UNKNOWN) [Suspect]
     Active Substance: TRASTUZUMAB
     Indication: OESOPHAGEAL ADENOCARCINOMA STAGE IV
     Dosage: UNKNOWN
  3. TS?1 [Suspect]
     Active Substance: GIMERACIL\OTERACIL\TEGAFUR
     Indication: OESOPHAGEAL ADENOCARCINOMA STAGE IV
     Dosage: UNK
  4. OXALIPLATIN. [Suspect]
     Active Substance: OXALIPLATIN
     Indication: OESOPHAGEAL ADENOCARCINOMA STAGE IV
  5. 5?FLUOROURACIL [FLUOROURACIL] [Concomitant]
     Active Substance: FLUOROURACIL
     Indication: OESOPHAGEAL ADENOCARCINOMA STAGE IV
     Dosage: 800 MG/M2, DAILY (DURING THE PERIOD FROM DAY 1 TO DAY 5)
     Route: 042

REACTIONS (2)
  - Drug ineffective [Unknown]
  - Metastases to liver [Unknown]
